FAERS Safety Report 19263896 (Version 1)
Quarter: 2021Q2

REPORT INFORMATION
  Report Type: Spontaneous
  Country: US (occurrence: US)
  Receive Date: 20210514
  Receipt Date: 20210514
  Transmission Date: 20210717
  Serious: No
  Sender: FDA-Public Use
  Company Number: None

PATIENT
  Age: 35 Year
  Sex: Female
  Weight: 98.1 kg

DRUGS (6)
  1. CLONAZEPAM. [Concomitant]
     Active Substance: CLONAZEPAM
  2. NEXPLANON [Concomitant]
     Active Substance: ETONOGESTREL
  3. FLONASE [Concomitant]
     Active Substance: FLUTICASONE PROPIONATE
  4. SINGULAIR [Suspect]
     Active Substance: MONTELUKAST SODIUM
     Indication: RHINITIS ALLERGIC
     Dosage: ?          QUANTITY:1 TABLET(S);?
     Route: 048
     Dates: start: 20210420, end: 20210514
  5. ZYRTEC [Concomitant]
     Active Substance: CETIRIZINE HYDROCHLORIDE
  6. ZOLOFT [Concomitant]
     Active Substance: SERTRALINE HYDROCHLORIDE

REACTIONS (20)
  - Feeling abnormal [None]
  - Hyperhidrosis [None]
  - Paraesthesia [None]
  - Abdominal pain upper [None]
  - Dysphonia [None]
  - Insomnia [None]
  - Chest discomfort [None]
  - Paranasal sinus discomfort [None]
  - Headache [None]
  - Confusional state [None]
  - Disturbance in attention [None]
  - Pyrexia [None]
  - Sinus pain [None]
  - Gait disturbance [None]
  - Dyspnoea [None]
  - Hallucination, auditory [None]
  - Hallucination, visual [None]
  - Head discomfort [None]
  - Hallucination [None]
  - Epinephrine increased [None]

NARRATIVE: CASE EVENT DATE: 20210514
